FAERS Safety Report 15136959 (Version 1)
Quarter: 2018Q3

REPORT INFORMATION
  Report Type: Spontaneous
  Country: ES (occurrence: ES)
  Receive Date: 20180712
  Receipt Date: 20180712
  Transmission Date: 20181010
  Serious: Yes (Hospitalization)
  Sender: FDA-Public Use
  Company Number: PHHY2018ES041865

PATIENT
  Age: 53 Year
  Sex: Male

DRUGS (3)
  1. DEXKETOPROFEN TROMETAMOL [Suspect]
     Active Substance: DEXKETOPROFEN TROMETAMOL
     Indication: BACK PAIN
     Dosage: DESCONOCIDA
     Route: 048
  2. ACETYLSALICYLIC ACID [Suspect]
     Active Substance: ASPIRIN
     Indication: HYPERSENSITIVITY
     Dosage: UNK
     Route: 048
  3. METAMIZOL [Suspect]
     Active Substance: METAMIZOLE SODIUM
     Indication: BACK PAIN
     Dosage: DESCONOCIDA
     Route: 048

REACTIONS (1)
  - Drug reaction with eosinophilia and systemic symptoms [Recovered/Resolved]

NARRATIVE: CASE EVENT DATE: 20180226
